FAERS Safety Report 15695746 (Version 1)
Quarter: 2018Q4

REPORT INFORMATION
  Report Type: Spontaneous
  Country: SE (occurrence: SE)
  Receive Date: 20181206
  Receipt Date: 20181206
  Transmission Date: 20190205
  Serious: Yes (Other)
  Sender: FDA-Public Use
  Company Number: SE-TEVA-460311ISR

PATIENT
  Age: 56 Year
  Sex: Female

DRUGS (2)
  1. FLUOXETIN TEVA [Suspect]
     Active Substance: FLUOXETINE HYDROCHLORIDE
     Indication: DECREASED APPETITE
  2. FLUOXETIN TEVA [Suspect]
     Active Substance: FLUOXETINE HYDROCHLORIDE
     Indication: BULIMIA NERVOSA
     Route: 065
     Dates: start: 201301, end: 201312

REACTIONS (3)
  - Visual field defect [Recovering/Resolving]
  - Eye pain [Recovering/Resolving]
  - Vision blurred [Recovering/Resolving]

NARRATIVE: CASE EVENT DATE: 2013
